FAERS Safety Report 25757918 (Version 1)
Quarter: 2025Q3

REPORT INFORMATION
  Report Type: Spontaneous
  Country: US (occurrence: US)
  Receive Date: 20250903
  Receipt Date: 20250903
  Transmission Date: 20251021
  Serious: No
  Sender: Hugel Aesthetics
  Company Number: US-Hugel Aesthetics-2183776

PATIENT
  Age: 48 Year
  Sex: Female

DRUGS (1)
  1. LETYBO [Suspect]
     Active Substance: LETIBOTULINUMTOXINA-WLBG
     Indication: Product used for unknown indication
     Dates: start: 20250620

REACTIONS (1)
  - Drug effect less than expected [Unknown]
